FAERS Safety Report 18695412 (Version 1)
Quarter: 2021Q1

REPORT INFORMATION
  Report Type: Other
  Country: US (occurrence: US)
  Receive Date: 20210104
  Receipt Date: 20210104
  Transmission Date: 20210419
  Serious: Yes (Hospitalization, Other)
  Sender: FDA-Public Use
  Company Number: US-BRECKENRIDGE PHARMACEUTICAL, INC.-2103863

PATIENT
  Age: 67 Year
  Sex: Female

DRUGS (5)
  1. TEMOZOLOMIDE. [Concomitant]
     Active Substance: TEMOZOLOMIDE
  2. DEXAMETHASONE. [Concomitant]
     Active Substance: DEXAMETHASONE
  3. RITUXIMAB. [Concomitant]
     Active Substance: RITUXIMAB
  4. LEVETIRACETAM. [Suspect]
     Active Substance: LEVETIRACETAM
  5. METHOTREXATE. [Interacting]
     Active Substance: METHOTREXATE

REACTIONS (1)
  - Drug interaction [None]
